FAERS Safety Report 19820332 (Version 1)
Quarter: 2021Q3

REPORT INFORMATION
  Report Type: Spontaneous
  Country: FR (occurrence: FR)
  Receive Date: 20210913
  Receipt Date: 20210913
  Transmission Date: 20211014
  Serious: Yes (Other)
  Sender: FDA-Public Use
  Company Number: FR-CELLTRION INC.-2021FR012505

PATIENT

DRUGS (2)
  1. INFLECTRA [Suspect]
     Active Substance: INFLIXIMAB-DYYB
     Indication: COLITIS
     Dosage: 10 MG/KG
     Route: 042
     Dates: start: 202009
  2. IMUREL [AZATHIOPRINE SODIUM] [Suspect]
     Active Substance: AZATHIOPRINE SODIUM
     Indication: COLITIS
     Dosage: 100 MG, 1X/DAY
     Route: 048
     Dates: start: 202006

REACTIONS (4)
  - Alopecia [Not Recovered/Not Resolved]
  - Rhinitis [Not Recovered/Not Resolved]
  - Umbilical hernia [Unknown]
  - Folliculitis [Not Recovered/Not Resolved]

NARRATIVE: CASE EVENT DATE: 202009
